FAERS Safety Report 5884789-0 (Version None)
Quarter: 2008Q3

REPORT INFORMATION
  Report Type: 
  Country: None (occurrence: None)
  Receive Date: 20080916
  Receipt Date: 20080907
  Transmission Date: 20090109
  Serious: Yes (Hospitalization, Other)
  Sender: FDA-Public Use
  Company Number: US-AMGEN-QUU306412

PATIENT
  Sex: Female

DRUGS (1)
  1. ENBREL [Suspect]
     Indication: RHEUMATOID ARTHRITIS
     Route: 058
     Dates: start: 20030901

REACTIONS (10)
  - ARTHRALGIA [None]
  - ASTHENIA [None]
  - BREAST MASS [None]
  - DEHYDRATION [None]
  - INJECTION SITE ERYTHEMA [None]
  - INJECTION SITE PRURITUS [None]
  - PRECANCEROUS SKIN LESION [None]
  - PROCEDURAL NAUSEA [None]
  - RENAL FAILURE ACUTE [None]
  - SKIN LESION [None]
